FAERS Safety Report 19222554 (Version 1)
Quarter: 2021Q2

REPORT INFORMATION
  Report Type: Spontaneous
  Country: GB (occurrence: GB)
  Receive Date: 20210506
  Receipt Date: 20210506
  Transmission Date: 20210717
  Serious: Yes (Other)
  Sender: FDA-Public Use
  Company Number: NVSC2021GB098878

PATIENT
  Age: 43 Year
  Sex: Male

DRUGS (1)
  1. LOSARTAN SANDOZ [Suspect]
     Active Substance: LOSARTAN
     Indication: ILL-DEFINED DISORDER
     Dosage: UNK UNK, QD
     Route: 048

REACTIONS (2)
  - Cerebrovascular accident [Unknown]
  - Medication error [Unknown]

NARRATIVE: CASE EVENT DATE: 20210124
